FAERS Safety Report 7236735-5 (Version None)
Quarter: 2011Q1

REPORT INFORMATION
  Report Type: 
  Country: None (occurrence: None)
  Receive Date: 20110120
  Receipt Date: 20110117
  Transmission Date: 20110831
  Serious: Yes (Other)
  Sender: FDA-Public Use
  Company Number: AT-PFIZER INC-2011011268

PATIENT
  Age: 80 Year
  Sex: Female

DRUGS (5)
  1. OXYCONTIN RETARD [Concomitant]
  2. TRESLEEN [Concomitant]
  3. LYRICA [Suspect]
     Indication: NEURALGIA
     Dosage: 50 MG, 2X/DAY
  4. LYRICA [Suspect]
     Indication: FEAR
  5. ANTIHYPERTENSIVES [Concomitant]

REACTIONS (3)
  - MOTOR DYSFUNCTION [None]
  - DYSKINESIA [None]
  - PARKINSONIAN GAIT [None]
